FAERS Safety Report 21126322 (Version 1)
Quarter: 2022Q3

REPORT INFORMATION
  Report Type: Spontaneous
  Country: US (occurrence: None)
  Receive Date: 20220725
  Receipt Date: 20220725
  Transmission Date: 20221027
  Serious: Yes (Other)
  Sender: FDA-Public Use
  Company Number: None

PATIENT
  Age: 78 Year
  Sex: Female

DRUGS (1)
  1. REVLIMID [Suspect]
     Active Substance: LENALIDOMIDE
     Indication: Myelodysplastic syndrome
     Dosage: OTHER FREQUENCY : Q21DAYS;?
     Dates: start: 20220526

REACTIONS (4)
  - Pain in extremity [None]
  - Erythema [None]
  - Gout [None]
  - Nausea [None]

NARRATIVE: CASE EVENT DATE: 20220719
